FAERS Safety Report 9365844 (Version 1)
Quarter: 2013Q2

REPORT INFORMATION
  Report Type: Spontaneous
  Country: US (occurrence: None)
  Receive Date: 20130624
  Receipt Date: 20130624
  Transmission Date: 20140414
  Serious: Yes (Other)
  Sender: FDA-Public Use
  Company Number: None

PATIENT
  Age: 18 Year
  Sex: Male
  Weight: 56.7 kg

DRUGS (2)
  1. CLOZARIL [Suspect]
     Indication: SCHIZOPHRENIA
     Dosage: CLOZARIL 100U TWICE DAILY ORAL I AM ; TWO HO
     Route: 048
     Dates: start: 19951012
  2. CLOZARIL [Suspect]
     Dosage: CLOZARIL 100U TWICE DAILY ORAL I AM ; TWO HO
     Route: 048
     Dates: start: 19951012

REACTIONS (4)
  - Psychotic disorder [None]
  - Treatment failure [None]
  - Drug ineffective [None]
  - Product substitution issue [None]
